FAERS Safety Report 11846053 (Version 12)
Quarter: 2016Q4

REPORT INFORMATION
  Report Type: Report from Study
  Country: US (occurrence: US)
  Receive Date: 20151217
  Receipt Date: 20161123
  Transmission Date: 20170206
  Serious: Yes (Life-Threatening, Hospitalization, Other)
  Sender: FDA-Public Use
  Company Number: US-ARIAD PHARMACEUTICALS, INC-2015US005832

PATIENT
  Age: 37 Year
  Sex: Female
  Weight: 86 kg

DRUGS (87)
  1. MORPHINE [Concomitant]
     Active Substance: MORPHINE
     Indication: CANCER PAIN
     Dosage: UNK
     Route: 048
     Dates: start: 20150617, end: 20151228
  2. ONDANSETRON [Concomitant]
     Active Substance: ONDANSETRON
     Indication: NAUSEA
     Dosage: UNK
     Route: 042
     Dates: start: 20151125, end: 20151127
  3. COMPAZINE [Concomitant]
     Active Substance: PROCHLORPERAZINE MALEATE
     Indication: NAUSEA
     Dosage: UNK
     Route: 048
     Dates: start: 20150720, end: 20151228
  4. COMPAZINE [Concomitant]
     Active Substance: PROCHLORPERAZINE MALEATE
     Indication: VOMITING
  5. ALLOPURINOL. [Concomitant]
     Active Substance: ALLOPURINOL
     Dosage: UNK
     Route: 048
  6. ACETAMINOPHEN. [Concomitant]
     Active Substance: ACETAMINOPHEN
     Indication: CANCER PAIN
     Dosage: UNK
     Route: 048
     Dates: start: 20151207, end: 20151228
  7. HEPARIN SODIUM. [Concomitant]
     Active Substance: HEPARIN SODIUM
     Dosage: UNK
     Route: 058
     Dates: start: 20151208, end: 20151212
  8. LOPERAMIDE [Concomitant]
     Active Substance: LOPERAMIDE
     Indication: DIARRHOEA
     Dosage: UNK
     Route: 048
     Dates: start: 20151209, end: 20151214
  9. CIPROFLOXACIN. [Concomitant]
     Active Substance: CIPROFLOXACIN
     Indication: URINARY TRACT INFECTION
     Dosage: UNK
     Route: 048
     Dates: start: 20151123, end: 20151125
  10. CALCIUM CARBONATE. [Concomitant]
     Active Substance: CALCIUM CARBONATE
     Indication: HYPOCALCAEMIA
     Dosage: UNK
     Route: 048
     Dates: start: 20151210, end: 20151221
  11. SERTRALINE [Concomitant]
     Active Substance: SERTRALINE HYDROCHLORIDE
     Indication: DEPRESSION
     Dosage: UNK
     Route: 048
     Dates: start: 20130926
  12. ALLOPURINOL. [Concomitant]
     Active Substance: ALLOPURINOL
     Indication: CHRONIC MYELOID LEUKAEMIA
     Dosage: UNK
     Route: 048
     Dates: start: 20150601, end: 20151228
  13. PROPOFOL. [Concomitant]
     Active Substance: PROPOFOL
     Indication: ENDOTRACHEAL INTUBATION
     Dosage: UNK
     Route: 042
     Dates: start: 20151203, end: 20151208
  14. ASPIRIN. [Concomitant]
     Active Substance: ASPIRIN
     Indication: EMBOLISM
     Dosage: UNK
     Route: 048
     Dates: start: 20151202, end: 20151202
  15. PANTOPRAZOLE [Concomitant]
     Active Substance: PANTOPRAZOLE SODIUM
     Indication: GASTROOESOPHAGEAL REFLUX DISEASE
     Dosage: UNK
     Route: 042
     Dates: start: 20151203, end: 20151205
  16. DOCUSATE SODIUM W/SENNOSIDE A+B [Concomitant]
     Active Substance: DOCUSATE SODIUM\SENNOSIDES A AND B
     Dosage: UNK
     Route: 048
     Dates: start: 20151204, end: 20151206
  17. SODIUM BICARBONATE. [Concomitant]
     Active Substance: SODIUM BICARBONATE
     Indication: TUMOUR LYSIS SYNDROME
     Dosage: UNK
     Route: 042
     Dates: start: 20151203, end: 20151203
  18. VANCOMYCIN [Concomitant]
     Active Substance: VANCOMYCIN
     Dosage: UNK
     Route: 042
     Dates: start: 20151203, end: 20151207
  19. VASOPRESSIN. [Concomitant]
     Active Substance: VASOPRESSIN
     Indication: TUMOUR LYSIS SYNDROME
     Dosage: UNK
     Route: 042
     Dates: start: 20151203, end: 20151204
  20. SENNOSIDES A+B [Concomitant]
     Active Substance: SENNOSIDES A AND B
     Indication: CONSTIPATION
     Dosage: UNK
     Route: 048
     Dates: start: 20151203, end: 20151206
  21. ONDANSETRON [Concomitant]
     Active Substance: ONDANSETRON
     Dosage: UNK
     Route: 048
     Dates: start: 20150330, end: 20151202
  22. OXYCODONE [Concomitant]
     Active Substance: OXYCODONE
     Indication: ABDOMINAL PAIN
     Dosage: UNK UNK, PRN
     Route: 048
     Dates: start: 20140619, end: 20151228
  23. FLUCONAZOLE. [Concomitant]
     Active Substance: FLUCONAZOLE
     Indication: URINARY TRACT INFECTION
     Dosage: UNK UNK, QD
     Route: 042
     Dates: start: 20151208, end: 20151221
  24. SODIUM CHLORIDE. [Concomitant]
     Active Substance: SODIUM CHLORIDE
     Indication: TUMOUR LYSIS SYNDROME
     Dosage: UNK
     Route: 042
     Dates: start: 20151207, end: 20151207
  25. CHLORHEXIDINE GLUCONATE. [Concomitant]
     Active Substance: CHLORHEXIDINE GLUCONATE
     Indication: PNEUMONIA
     Dosage: UNK
     Route: 048
     Dates: start: 20151203, end: 20151211
  26. AMPHOTERICIN B. [Concomitant]
     Active Substance: AMPHOTERICIN B
     Indication: URINARY TRACT INFECTION
     Dosage: UNK
     Route: 050
     Dates: start: 20151211, end: 20151216
  27. AMPHOTERICIN B. [Concomitant]
     Active Substance: AMPHOTERICIN B
     Indication: BLADDER INSTILLATION PROCEDURE
  28. HEPARIN SODIUM. [Concomitant]
     Active Substance: HEPARIN SODIUM
     Indication: DEEP VEIN THROMBOSIS
     Dosage: UNK
     Route: 050
     Dates: start: 20151203, end: 20151206
  29. INSULIN REGULAR [Concomitant]
     Active Substance: INSULIN NOS
     Indication: TUMOUR LYSIS SYNDROME
     Dosage: UNK
     Route: 042
     Dates: start: 20151203, end: 20151215
  30. LEVOFLOXACIN. [Concomitant]
     Active Substance: LEVOFLOXACIN
     Indication: INFECTION
     Dosage: UNK
     Route: 042
     Dates: start: 20151207, end: 20151207
  31. VANCOMYCIN [Concomitant]
     Active Substance: VANCOMYCIN
     Indication: INFECTION
     Dosage: UNK
     Route: 042
     Dates: start: 20151125, end: 20151125
  32. GASTROGRAFIN [Concomitant]
     Active Substance: DIATRIZOATE MEGLUMINE\DIATRIZOATE SODIUM
     Indication: IMAGING PROCEDURE
     Dosage: UNK
     Route: 048
     Dates: start: 20151203, end: 20151203
  33. HYDROXYZINE HYDROCHLORIDE. [Concomitant]
     Active Substance: HYDROXYZINE HYDROCHLORIDE
     Indication: PRURITUS
     Dosage: UNK
     Route: 048
     Dates: start: 20151129, end: 20151129
  34. OXYGEN. [Concomitant]
     Active Substance: OXYGEN
     Indication: DYSPNOEA
     Dosage: UNK
     Route: 045
     Dates: start: 20151203, end: 20160125
  35. PONATINIB [Suspect]
     Active Substance: PONATINIB
     Dosage: 45 MG, QD
     Route: 048
     Dates: start: 20151218, end: 20160309
  36. HYDROXYZINE PAMOATE. [Concomitant]
     Active Substance: HYDROXYZINE PAMOATE
     Indication: ANXIETY
     Dosage: UNK
     Route: 048
     Dates: start: 20150601, end: 20160224
  37. BENADRYL [Concomitant]
     Active Substance: DIPHENHYDRAMINE HYDROCHLORIDE
     Indication: PRURITUS
     Dosage: UNK
     Route: 048
     Dates: start: 20150430, end: 20160323
  38. FENTANYL. [Concomitant]
     Active Substance: FENTANYL
     Dosage: UNK
     Route: 042
     Dates: start: 20151203, end: 20151213
  39. ALBUTEROL. [Concomitant]
     Active Substance: ALBUTEROL
     Indication: RESPIRATORY FAILURE
     Dosage: INHALED
     Route: 055
     Dates: start: 20151203, end: 20151207
  40. SALINE [Concomitant]
     Active Substance: SODIUM CHLORIDE
     Indication: NASAL DRYNESS
     Dosage: SPRAY
     Route: 045
     Dates: start: 20151201, end: 20151201
  41. PONATINIB [Suspect]
     Active Substance: PONATINIB
     Dosage: 30 MG, QD
     Route: 048
     Dates: start: 20160310, end: 20160418
  42. OLANZAPINE. [Concomitant]
     Active Substance: OLANZAPINE
     Indication: DEPRESSION
     Dosage: UNK
     Route: 048
     Dates: start: 20150428, end: 20160307
  43. HYDROXYUREA. [Concomitant]
     Active Substance: HYDROXYUREA
     Indication: CHRONIC MYELOID LEUKAEMIA
     Dosage: UNK
     Route: 048
     Dates: start: 20151116, end: 20151208
  44. CALCIUM GLUCONATE. [Concomitant]
     Active Substance: CALCIUM GLUCONATE
     Indication: TUMOUR LYSIS SYNDROME
     Dosage: UNK
     Route: 042
     Dates: start: 20151205, end: 20151206
  45. ENOXAPARIN [Concomitant]
     Active Substance: ENOXAPARIN
     Indication: DEEP VEIN THROMBOSIS
     Dosage: UNK
     Route: 058
     Dates: start: 20151127, end: 20151202
  46. LORAZEPAM. [Concomitant]
     Active Substance: LORAZEPAM
     Indication: ANXIETY
     Dosage: UNK
     Route: 060
     Dates: start: 20151120, end: 20151120
  47. DOCUSATE SODIUM W/SENNOSIDE A+B [Concomitant]
     Active Substance: DOCUSATE SODIUM\SENNOSIDES A AND B
     Indication: CONSTIPATION
     Dosage: UNK
     Route: 048
     Dates: start: 20151126, end: 20151202
  48. PHYTONADIONE. [Concomitant]
     Active Substance: PHYTONADIONE
     Indication: HAEMORRHAGE
     Dosage: UNK
     Route: 048
     Dates: start: 20151126, end: 20151128
  49. IOPAMIDOL [Concomitant]
     Active Substance: IOPAMIDOL
     Indication: IMAGING PROCEDURE
     Dosage: UNK
     Route: 042
     Dates: start: 20151207, end: 20151207
  50. DOCUSATE [Concomitant]
     Active Substance: DOCUSATE
     Indication: CONSTIPATION
     Dosage: UNK
     Route: 048
     Dates: start: 20151204, end: 20151206
  51. PONATINIB [Suspect]
     Active Substance: PONATINIB
     Indication: CHRONIC MYELOID LEUKAEMIA
     Dosage: 45 MG, QD
     Route: 048
     Dates: start: 20151202, end: 20151211
  52. OMEPRAZOLE. [Concomitant]
     Active Substance: OMEPRAZOLE
     Indication: GASTROOESOPHAGEAL REFLUX DISEASE
     Dosage: UNK
     Route: 048
     Dates: start: 20151206
  53. FENTANYL. [Concomitant]
     Active Substance: FENTANYL
     Indication: ABDOMINAL PAIN
     Dosage: UNK
     Route: 002
     Dates: start: 20151120, end: 20151120
  54. PROPOFOL. [Concomitant]
     Active Substance: PROPOFOL
     Indication: AGITATION
     Dosage: UNK
     Route: 042
     Dates: start: 20151210, end: 20151213
  55. CEFTRIAXONE. [Concomitant]
     Active Substance: CEFTRIAXONE
     Indication: URINARY TRACT INFECTION
     Dosage: UNK
     Route: 042
     Dates: start: 20151120, end: 20151120
  56. DEXTROSE. [Concomitant]
     Active Substance: DEXTROSE
     Indication: TUMOUR LYSIS SYNDROME
     Dosage: UNK
     Route: 042
     Dates: start: 20151203, end: 20151203
  57. ALTEPLASE [Concomitant]
     Active Substance: ALTEPLASE
     Indication: PULMONARY EMBOLISM
     Dosage: UNK
     Route: 050
     Dates: start: 20151206, end: 20151206
  58. ETOMIDATE. [Concomitant]
     Active Substance: ETOMIDATE
     Indication: ENDOTRACHEAL INTUBATION
     Dosage: UNK
     Route: 042
     Dates: start: 20151203, end: 20151203
  59. HEPARIN SODIUM. [Concomitant]
     Active Substance: HEPARIN SODIUM
     Dosage: UNK
     Route: 050
     Dates: start: 20151206, end: 20151206
  60. LACTATED RINGERS [Concomitant]
     Active Substance: CALCIUM CHLORIDE\POTASSIUM CHLORIDE\SODIUM CHLORIDE\SODIUM LACTATE
     Indication: TUMOUR LYSIS SYNDROME
     Dosage: UNK
     Route: 042
     Dates: start: 20151203, end: 20151203
  61. LORAZEPAM. [Concomitant]
     Active Substance: LORAZEPAM
     Dosage: UNK
     Route: 042
     Dates: start: 20151211, end: 20151213
  62. MEROPENEM. [Concomitant]
     Active Substance: MEROPENEM
     Indication: INFECTION
     Dosage: UNK
     Route: 042
     Dates: start: 20151203, end: 20151212
  63. MULTIVITAMIN [Concomitant]
     Active Substance: VITAMINS
     Indication: ROUTINE HEALTH MAINTENANCE
     Dosage: UNK
     Route: 048
     Dates: start: 20151127, end: 20151202
  64. NOREPINEPHRINE [Concomitant]
     Active Substance: NOREPINEPHRINE\NOREPINEPHRINE BITARTRATE
     Indication: HYPOTENSION
     Dosage: UNK
     Route: 042
     Dates: start: 20151203, end: 20151204
  65. ZEMURON [Concomitant]
     Active Substance: ROCURONIUM BROMIDE
     Indication: ENDOTRACHEAL INTUBATION
     Dosage: UNK
     Route: 042
     Dates: start: 20151203, end: 20151203
  66. VANCOMYCIN [Concomitant]
     Active Substance: VANCOMYCIN
     Dosage: UNK
     Route: 042
     Dates: start: 20151209, end: 20151209
  67. POLYETHYLENE GLYCOL 3350. [Concomitant]
     Active Substance: POLYETHYLENE GLYCOL 3350
     Indication: CONSTIPATION
     Dosage: UNK
     Route: 048
     Dates: start: 20151127, end: 20151206
  68. SULFAMETHOXAZOLE AND TRIMETHOPRIM [Concomitant]
     Active Substance: SULFAMETHOXAZOLE\TRIMETHOPRIM
     Indication: URINARY TRACT INFECTION
     Dosage: UNK
     Route: 048
     Dates: start: 20151120, end: 20151127
  69. DIAZEPAM. [Concomitant]
     Active Substance: DIAZEPAM
     Indication: ANXIETY
     Dosage: UNK
     Route: 048
     Dates: start: 20140619, end: 20160104
  70. MORPHINE [Concomitant]
     Active Substance: MORPHINE
     Indication: PAIN
     Dosage: UNK
     Route: 042
     Dates: start: 20151125, end: 20151125
  71. ACETAMINOPHEN. [Concomitant]
     Active Substance: ACETAMINOPHEN
     Indication: PAIN
     Dosage: UNK
     Route: 048
     Dates: start: 20151125, end: 20151202
  72. ACETAMINOPHEN. [Concomitant]
     Active Substance: ACETAMINOPHEN
     Indication: PYREXIA
  73. SODIUM CHLORIDE. [Concomitant]
     Active Substance: SODIUM CHLORIDE
     Indication: DEHYDRATION
     Dosage: UNK
     Route: 042
     Dates: start: 20151126, end: 20151128
  74. HYDROMORPHONE [Concomitant]
     Active Substance: HYDROMORPHONE
     Indication: SPLENOMEGALY
     Dosage: UNK
     Route: 042
     Dates: start: 20151125, end: 20151202
  75. SALT [Concomitant]
     Active Substance: SODIUM CHLORIDE
     Indication: MUCOSAL INFLAMMATION
     Dosage: UNK
     Route: 048
     Dates: start: 20151130, end: 20151130
  76. POTASSIUM PHOSPHATE DIBASIC W/POTASSIUM PHOSPHATE MONOBASIC/SODIUM PHO [Concomitant]
     Indication: HYPOCALCAEMIA
     Dosage: UNK
     Route: 048
     Dates: start: 20151202, end: 20151202
  77. THIAMINE. [Concomitant]
     Active Substance: THIAMINE
     Indication: ROUTINE HEALTH MAINTENANCE
     Dosage: UNK
     Route: 048
     Dates: start: 20151127, end: 20151202
  78. IOPAMIDOL [Concomitant]
     Active Substance: IOPAMIDOL
     Indication: IMAGING PROCEDURE
     Dosage: UNK
     Route: 042
     Dates: start: 20151125, end: 20151125
  79. SUMATRIPTAN. [Concomitant]
     Active Substance: SUMATRIPTAN
     Indication: MIGRAINE
     Dosage: UNK
     Route: 048
     Dates: start: 20150629, end: 20160224
  80. FUROSEMIDE. [Concomitant]
     Active Substance: FUROSEMIDE
     Indication: OEDEMA PERIPHERAL
     Dosage: UNK
     Route: 042
     Dates: start: 20151130, end: 20151130
  81. LACTULOSE. [Concomitant]
     Active Substance: LACTULOSE
     Indication: CONSTIPATION
     Dosage: UNK
     Route: 048
     Dates: start: 20151202, end: 20151202
  82. MEROPENEM. [Concomitant]
     Active Substance: MEROPENEM
     Indication: SKIN INFECTION
     Dosage: UNK
     Route: 042
     Dates: start: 20151125, end: 20151127
  83. SEROQUEL [Concomitant]
     Active Substance: QUETIAPINE FUMARATE
     Indication: DEPRESSION
     Dosage: UNK
     Route: 048
     Dates: start: 20151128, end: 20151202
  84. VANCOMYCIN [Concomitant]
     Active Substance: VANCOMYCIN
     Dosage: UNK
     Route: 042
     Dates: start: 20151211, end: 20151211
  85. LOZENGER T [Concomitant]
     Indication: OROPHARYNGEAL PAIN
     Dosage: UNK
     Route: 048
     Dates: start: 20151202, end: 20151203
  86. PHYTONADIONE. [Concomitant]
     Active Substance: PHYTONADIONE
     Dosage: UNK
     Route: 042
     Dates: start: 20151203, end: 20151205
  87. IOPAMIDOL [Concomitant]
     Active Substance: IOPAMIDOL
     Indication: IMAGING PROCEDURE
     Dosage: UNK
     Route: 042
     Dates: start: 20151130, end: 20151130

REACTIONS (4)
  - Tumour lysis syndrome [Recovered/Resolved]
  - Cardio-respiratory arrest [Recovered/Resolved]
  - Anaemia [Recovered/Resolved]
  - Splenic infarction [Recovered/Resolved with Sequelae]

NARRATIVE: CASE EVENT DATE: 20151202
